FAERS Safety Report 15456444 (Version 2)
Quarter: 2018Q4

REPORT INFORMATION
  Report Type: Spontaneous
  Country: PL (occurrence: PL)
  Receive Date: 20181002
  Receipt Date: 20181009
  Transmission Date: 20190204
  Serious: Yes (Life-Threatening)
  Sender: FDA-Public Use
  Company Number: PHHY2018PL113880

PATIENT
  Age: 31 Year
  Sex: Female

DRUGS (2)
  1. HEPARIN [Suspect]
     Active Substance: HEPARIN SODIUM
     Indication: PELVIC VENOUS THROMBOSIS
     Dosage: UNK
     Route: 065
  2. ENOXAPARIN [Suspect]
     Active Substance: ENOXAPARIN
     Indication: PELVIC VENOUS THROMBOSIS
     Dosage: UNK
     Route: 065

REACTIONS (4)
  - Foetal death [Unknown]
  - Maternal exposure during pregnancy [Unknown]
  - Disease progression [Unknown]
  - Heparin-induced thrombocytopenia [Recovered/Resolved]
